FAERS Safety Report 23309371 (Version 3)
Quarter: 2023Q4

REPORT INFORMATION
  Report Type: Spontaneous
  Country: US (occurrence: US)
  Receive Date: 20231218
  Receipt Date: 20231218
  Transmission Date: 20240110
  Serious: No
  Sender: FDA-Public Use
  Company Number: US-ABBVIE-5541640

PATIENT
  Age: 47 Year
  Sex: Male
  Weight: 88.4 kg

DRUGS (1)
  1. HUMIRA [Suspect]
     Active Substance: ADALIMUMAB
     Indication: Hidradenitis
     Dosage: FORM STRENGTH: 80MG
     Route: 058
     Dates: start: 20231120

REACTIONS (1)
  - Sperm concentration decreased [Not Recovered/Not Resolved]

NARRATIVE: CASE EVENT DATE: 20231121
